FAERS Safety Report 8037338-5 (Version None)
Quarter: 2012Q1

REPORT INFORMATION
  Report Type: 
  Country: None (occurrence: None)
  Receive Date: 20120111
  Receipt Date: 20120109
  Transmission Date: 20120608
  Serious: Yes (Hospitalization, Other)
  Sender: FDA-Public Use
  Company Number: US-BAYER-2012-001575

PATIENT
  Age: 47 Year
  Sex: Female

DRUGS (2)
  1. BETASERON [Suspect]
     Indication: MULTIPLE SCLEROSIS
     Dosage: 2 MIU, UNK
     Route: 058
     Dates: start: 20111208
  2. BETASERON [Suspect]
     Dosage: 4 MIU, QOD
     Route: 058

REACTIONS (10)
  - BACK PAIN [None]
  - TINNITUS [None]
  - TREMOR [None]
  - DIARRHOEA [None]
  - ABDOMINAL PAIN UPPER [None]
  - MULTIPLE SCLEROSIS RELAPSE [None]
  - VOMITING [None]
  - CONSTIPATION [None]
  - DYSARTHRIA [None]
  - VISION BLURRED [None]
